FAERS Safety Report 7494879-7 (Version None)
Quarter: 2011Q2

REPORT INFORMATION
  Report Type: 
  Country: None (occurrence: None)
  Receive Date: 20110520
  Receipt Date: 20110513
  Transmission Date: 20111010
  Serious: Yes (Hospitalization)
  Sender: FDA-Public Use
  Company Number: US-B.I. PHARMACEUTICALS,INC./RIDGEFIELD-2011-BP-13143BP

PATIENT
  Age: 60 Year
  Sex: Male

DRUGS (3)
  1. PRADAXA [Suspect]
     Indication: ATRIAL FIBRILLATION
  2. PLAVIX [Suspect]
     Indication: MYOCARDIAL INFARCTION
  3. ASPIRIN [Suspect]
     Indication: MYOCARDIAL INFARCTION

REACTIONS (2)
  - BLOOD URINE PRESENT [None]
  - BLADDER CANCER [None]
